FAERS Safety Report 10264477 (Version 1)
Quarter: 2014Q2

REPORT INFORMATION
  Report Type: Spontaneous
  Country: US (occurrence: US)
  Receive Date: 20140627
  Receipt Date: 20140627
  Transmission Date: 20141212
  Serious: No
  Sender: FDA-Public Use
  Company Number: US-BAYER-2014-096898

PATIENT
  Age: 72 Year
  Sex: Female
  Weight: 102.49 kg

DRUGS (6)
  1. ALEVE TABLET [Suspect]
     Dosage: 2 DF, QD
     Route: 048
     Dates: start: 2011
  2. VITAMIN D3 [Concomitant]
     Dosage: UNK
  3. BAYER ASPIRIN REGIMEN REGULAR 325 MG STRENGTH [Concomitant]
     Indication: ISCHAEMIC HEART DISEASE PROPHYLAXIS
  4. LOSARTAN [Concomitant]
     Dosage: UNK
  5. BYSTOLIC [Concomitant]
     Dosage: UNK
  6. LIPITOR [Concomitant]
     Dosage: UNK

REACTIONS (1)
  - Incorrect drug administration duration [Not Recovered/Not Resolved]
